FAERS Safety Report 15583578 (Version 1)
Quarter: 2018Q4

REPORT INFORMATION
  Report Type: Spontaneous
  Country: NL (occurrence: NL)
  Receive Date: 20181105
  Receipt Date: 20181105
  Transmission Date: 20190205
  Serious: Yes (Hospitalization, Other)
  Sender: FDA-Public Use
  Company Number: NL-AUROBINDO-AUR-APL-2018-053466

PATIENT
  Age: 38 Year
  Sex: Male
  Weight: 185 kg

DRUGS (2)
  1. SPIRONOLACTONE TABLET [Suspect]
     Active Substance: SPIRONOLACTONE
     Indication: CARDIOVASCULAR DISORDER
     Dosage: 25 MILLIGRAM, TWO TIMES A DAY
     Route: 065
     Dates: start: 201803
  2. SPIRONOLACTONE TABLET [Suspect]
     Active Substance: SPIRONOLACTONE
     Dosage: 25 MILLIGRAM, DAILY
     Route: 065
     Dates: start: 2011, end: 201803

REACTIONS (2)
  - Food interaction [Recovered/Resolved with Sequelae]
  - Hyperkalaemia [Recovered/Resolved with Sequelae]

NARRATIVE: CASE EVENT DATE: 20180327
